FAERS Safety Report 23857427 (Version 1)
Quarter: 2024Q2

REPORT INFORMATION
  Report Type: Spontaneous
  Country: GB (occurrence: GB)
  Receive Date: 20240515
  Receipt Date: 20240515
  Transmission Date: 20240716
  Serious: Yes (Other)
  Sender: FDA-Public Use
  Company Number: None

PATIENT
  Age: 7 Year
  Sex: Female
  Weight: 31 kg

DRUGS (2)
  1. MONTELUKAST [Suspect]
     Active Substance: MONTELUKAST SODIUM
     Indication: Product used for unknown indication
     Dosage: AT NIGHT
     Dates: start: 20240318
  2. BECLOMETHASONE DIPROPIONATE [Concomitant]
     Active Substance: BECLOMETHASONE DIPROPIONATE
     Dosage: FOR SCHOOL - AT LUNCHTIME, WITH BL...
     Route: 055
     Dates: start: 20240124

REACTIONS (6)
  - Abnormal behaviour [Recovering/Resolving]
  - Mood altered [Recovering/Resolving]
  - Anger [Recovering/Resolving]
  - Irritability [Recovering/Resolving]
  - Flat affect [Recovering/Resolving]
  - Decreased interest [Recovering/Resolving]

NARRATIVE: CASE EVENT DATE: 20240415
